FAERS Safety Report 19477603 (Version 1)
Quarter: 2021Q2

REPORT INFORMATION
  Report Type: Spontaneous
  Country: FR (occurrence: FR)
  Receive Date: 20210630
  Receipt Date: 20210630
  Transmission Date: 20210717
  Serious: Yes (Other)
  Sender: FDA-Public Use
  Company Number: FR-MYLANLABS-2021M1038568

PATIENT
  Sex: Male

DRUGS (2)
  1. SILDENAFIL. [Suspect]
     Active Substance: SILDENAFIL
     Indication: PRODUCT USED FOR UNKNOWN INDICATION
     Dosage: 100 MILLIGRAM, THE PATIENT RECEIVED 6 DOSES OF TOTAL 600MG DURING 40?HOUR SESSION
     Route: 065
  2. BUTYROLACTONE [Suspect]
     Active Substance: BUTYROLACTONE
     Indication: PRODUCT USED FOR UNKNOWN INDICATION
     Dosage: 16.3 MILLILITER, THE PATIENT RECEIVED 11 DOSES OF TOTAL 16.3 ML DURING 40?HOUR SESSION
     Route: 065

REACTIONS (1)
  - Drug abuse [Unknown]
